FAERS Safety Report 16399536 (Version 1)
Quarter: 2019Q2

REPORT INFORMATION
  Report Type: Spontaneous
  Country: US (occurrence: US)
  Receive Date: 20190606
  Receipt Date: 20190606
  Transmission Date: 20190711
  Serious: Yes (Other)
  Sender: FDA-Public Use
  Company Number: US-SA-2017SA248614

PATIENT
  Age: 46 Year
  Sex: Female
  Weight: 62.59 kg

DRUGS (3)
  1. TAXOTERE [Suspect]
     Active Substance: DOCETAXEL
     Indication: BREAST CANCER FEMALE
     Dosage: 129 MG,Q3W
     Route: 042
     Dates: start: 20150305, end: 20150305
  2. TAXOTERE [Suspect]
     Active Substance: DOCETAXEL
     Dosage: 129 MG,Q3W
     Route: 042
     Dates: start: 20150618, end: 20150618
  3. PARAPLATIN [Concomitant]
     Active Substance: CARBOPLATIN
     Indication: PRODUCT USED FOR UNKNOWN INDICATION
     Dosage: UNK, UNK
     Route: 065

REACTIONS (1)
  - Alopecia [Recovering/Resolving]

NARRATIVE: CASE EVENT DATE: 20150618
